FAERS Safety Report 22636742 (Version 1)
Quarter: 2023Q2

REPORT INFORMATION
  Report Type: Spontaneous
  Country: US (occurrence: None)
  Receive Date: 20230621
  Receipt Date: 20230621
  Transmission Date: 20230721
  Serious: Yes (Other)
  Sender: FDA-Public Use
  Company Number: None

PATIENT
  Age: 65 Year
  Sex: Female

DRUGS (6)
  1. KISQALI [Suspect]
     Active Substance: RIBOCICLIB
     Indication: Breast cancer
     Dosage: FREQUENCY : DAILY;?
     Route: 048
     Dates: start: 20230609
  2. FASLODEX [Concomitant]
     Active Substance: FULVESTRANT
  3. GABAPENTIN [Concomitant]
     Active Substance: GABAPENTIN
  4. OXYCODONE [Concomitant]
     Active Substance: OXYCODONE
  5. ENTRESTO [Concomitant]
     Active Substance: SACUBITRIL\VALSARTAN
  6. CARVEDILOL [Concomitant]
     Active Substance: CARVEDILOL

REACTIONS (4)
  - Syncope [None]
  - Hypotension [None]
  - Fatigue [None]
  - Dysphonia [None]

NARRATIVE: CASE EVENT DATE: 20230617
